FAERS Safety Report 4714059-5 (Version None)
Quarter: 2005Q3

REPORT INFORMATION
  Report Type: 
  Country: None (occurrence: None)
  Receive Date: 20050713
  Receipt Date: 20050713
  Transmission Date: 20060218
  Serious: Yes (Other)
  Sender: FDA-Public Use
  Company Number: None

PATIENT
  Sex: Male
  Weight: 67.586 kg

DRUGS (1)
  1. NITROGLYCERIN [Suspect]
     Indication: ANGINA PECTORIS
     Dosage: PRN SUBLINGUAL
     Route: 060

REACTIONS (2)
  - DERMATITIS CONTACT [None]
  - TONGUE BLISTERING [None]
